FAERS Safety Report 6231866-0 (Version None)
Quarter: 2009Q2

REPORT INFORMATION
  Report Type: 
  Country: None (occurrence: None)
  Receive Date: 20090612
  Receipt Date: 20090612
  Transmission Date: 20091009
  Serious: Yes (Hospitalization)
  Sender: FDA-Public Use
  Company Number: None

PATIENT
  Age: 13 Year
  Sex: Female
  Weight: 50.5 kg

DRUGS (1)
  1. AMITRIPTYLINE HCL [Suspect]
     Indication: MIGRAINE PROPHYLAXIS
     Dosage: 10MG DAILY AT BEDTIME PO
     Route: 048
     Dates: start: 20071101, end: 20090327

REACTIONS (10)
  - ACTIVITIES OF DAILY LIVING IMPAIRED [None]
  - ASTHENIA [None]
  - FATIGUE [None]
  - HYPERSOMNIA [None]
  - LYMPHADENOPATHY [None]
  - MALAISE [None]
  - MENTAL DISORDER [None]
  - MYALGIA [None]
  - PARALYSIS [None]
  - PYREXIA [None]
